FAERS Safety Report 6972754-1 (Version None)
Quarter: 2010Q3

REPORT INFORMATION
  Report Type: 
  Country: None (occurrence: None)
  Receive Date: 20100909
  Receipt Date: 20100831
  Transmission Date: 20110219
  Serious: Yes (Hospitalization)
  Sender: FDA-Public Use
  Company Number: US-AMGEN-QUU432171

PATIENT
  Sex: Female
  Weight: 76.3 kg

DRUGS (6)
  1. ENBREL [Suspect]
     Indication: RHEUMATOID ARTHRITIS
     Route: 058
     Dates: start: 20090929, end: 20100811
  2. MOBIC [Concomitant]
     Route: 048
     Dates: start: 20051025
  3. FORTEO [Concomitant]
     Route: 058
     Dates: start: 20090120
  4. HYDROCHLOROTHIAZIDE [Concomitant]
  5. METHOTREXATE [Concomitant]
     Route: 048
     Dates: start: 20090218
  6. FOLIC ACID [Concomitant]
     Route: 048
     Dates: start: 20090218

REACTIONS (1)
  - BREAST CANCER [None]
